FAERS Safety Report 4743306-9 (Version None)
Quarter: 2005Q3

REPORT INFORMATION
  Report Type: 
  Country: None (occurrence: None)
  Receive Date: 20050811
  Receipt Date: 20050727
  Transmission Date: 20060218
  Serious: Yes (Other)
  Sender: FDA-Public Use
  Company Number: 2005108518

PATIENT
  Sex: Male

DRUGS (2)
  1. VIAGRA [Suspect]
     Indication: ERECTILE DYSFUNCTION
     Dosage: ORAL
     Route: 048
  2. ALCOHOL (ETHANOL) [Suspect]
     Indication: ILL-DEFINED DISORDER

REACTIONS (7)
  - DRUG DEPENDENCE [None]
  - DRUG INEFFECTIVE [None]
  - GASTRIC DISORDER [None]
  - HYPERCHLORHYDRIA [None]
  - NERVOUSNESS [None]
  - OESOPHAGITIS [None]
  - PHARMACEUTICAL PRODUCT COMPLAINT [None]
